FAERS Safety Report 7791901-5 (Version None)
Quarter: 2011Q3

REPORT INFORMATION
  Report Type: 
  Country: None (occurrence: None)
  Receive Date: 20110929
  Receipt Date: 20110914
  Transmission Date: 20111222
  Serious: Yes (Hospitalization)
  Sender: FDA-Public Use
  Company Number: US-2011-10226

PATIENT
  Age: 36 Year
  Sex: Male

DRUGS (25)
  1. ACYCLOVIR [Concomitant]
  2. COMPAZINE [Concomitant]
  3. MORPHINE [Concomitant]
  4. BUSULFAN [Suspect]
     Indication: STEM CELL TRANSPLANT
     Dosage: 55 MG MILLIGRAM(S), DAILY DOSE, INTRAVENOUS, 213 MG MILLIGRAM(S), DAILY DOSE, INTRAVENOUS
     Route: 042
     Dates: start: 20110404, end: 20110407
  5. BUSULFAN [Suspect]
     Indication: STEM CELL TRANSPLANT
     Dosage: 55 MG MILLIGRAM(S), DAILY DOSE, INTRAVENOUS, 213 MG MILLIGRAM(S), DAILY DOSE, INTRAVENOUS
     Route: 042
     Dates: start: 20110330, end: 20110330
  6. CARAFATE [Concomitant]
  7. ONDANSETRON HCL (ONDANSETRON HYDROCHLORIDE) [Concomitant]
  8. OXYCODONE HCL [Concomitant]
  9. MAGNESIUM SULFATE [Suspect]
     Indication: ELECTROLYTE SUBSTITUTION THERAPY
     Dosage: 1 G GRAM(S), G1HR, INTRAVENOUS
     Route: 042
     Dates: start: 20110409
  10. ATIVAN [Concomitant]
  11. COREG [Concomitant]
  12. ZOCOR [Concomitant]
  13. ENOXAPARIN SODIUM [Concomitant]
  14. SCOPOLAMINE DCI (HYOSCINE) [Concomitant]
  15. CIPRO (CIPROFLOXACIN LACTATE) [Concomitant]
  16. CYCLOPHOSPHAMIDE MONOHYDRATE (CYCLOPHOSPHAMIDE MONOHYDRATE) [Concomitant]
  17. BACLOFEN [Concomitant]
  18. NEXIUM [Concomitant]
  19. LISINOPRIL [Concomitant]
  20. ACETAMINOPHEN [Concomitant]
  21. POTASSIUM CHLORIDE [Concomitant]
  22. DIPHENHYDRAMINE HCL [Concomitant]
  23. DEXAMETHASONE SODIUM PHOSPHATE [Concomitant]
  24. ETOPOSIDE [Concomitant]
  25. DIFLUCAN [Concomitant]

REACTIONS (15)
  - FEBRILE NEUTROPENIA [None]
  - SCROTAL IRRITATION [None]
  - NAUSEA [None]
  - DYSPHAGIA [None]
  - MALAISE [None]
  - MUCOSAL INFLAMMATION [None]
  - HYPOPHAGIA [None]
  - VOMITING [None]
  - DRY SKIN [None]
  - DEHYDRATION [None]
  - DIARRHOEA [None]
  - SCROTAL DISORDER [None]
  - PANCYTOPENIA [None]
  - CLOSTRIDIAL INFECTION [None]
  - PAIN [None]
